FAERS Safety Report 20868968 (Version 1)
Quarter: 2022Q2

REPORT INFORMATION
  Report Type: Spontaneous
  Country: US (occurrence: None)
  Receive Date: 20220524
  Receipt Date: 20220524
  Transmission Date: 20220721
  Serious: Yes (Other)
  Sender: FDA-Public Use
  Company Number: None

PATIENT
  Age: 72 Year
  Sex: Male

DRUGS (1)
  1. TOLTERODINE TARTRATE [Suspect]
     Active Substance: TOLTERODINE TARTRATE
     Indication: Hypertonic bladder
     Dosage: OTHER FREQUENCY : 1 PILL DAILY;?
     Route: 048
     Dates: start: 20220513, end: 20220515

REACTIONS (7)
  - Constipation [None]
  - Fatigue [None]
  - Decreased appetite [None]
  - Retching [None]
  - Vomiting [None]
  - Back pain [None]
  - Weight decreased [None]

NARRATIVE: CASE EVENT DATE: 20220515
